FAERS Safety Report 6098880-X (Version None)
Quarter: 2009Q1

REPORT INFORMATION
  Report Type: 
  Country: None (occurrence: None)
  Receive Date: 20090302
  Receipt Date: 20090225
  Transmission Date: 20090719
  Serious: Yes (Other)
  Sender: FDA-Public Use
  Company Number: B0562279A

PATIENT
  Age: 84 Year
  Sex: Female

DRUGS (2)
  1. LANOXIN [Suspect]
     Indication: ATRIAL FIBRILLATION
     Route: 042
  2. LANOXIN [Suspect]
     Route: 065

REACTIONS (1)
  - HYPOKALAEMIA [None]
